FAERS Safety Report 21114341 (Version 1)
Quarter: 2022Q3

REPORT INFORMATION
  Report Type: Report from Study
  Country: US (occurrence: US)
  Receive Date: 20220721
  Receipt Date: 20220721
  Transmission Date: 20221027
  Serious: Yes (Other)
  Sender: FDA-Public Use
  Company Number: US-TAKEDA-2022TUS043818

PATIENT
  Sex: Female

DRUGS (1)
  1. ANTI-INHIBITOR COAGULANT COMPLEX [Suspect]
     Active Substance: ANTI-INHIBITOR COAGULANT COMPLEX
     Indication: Product used for unknown indication
     Dosage: 6000 INTERNATIONAL UNIT
     Route: 042

REACTIONS (6)
  - Catheter site haemorrhage [Unknown]
  - Joint swelling [Unknown]
  - Arthralgia [Unknown]
  - Limb injury [Unknown]
  - Peripheral swelling [Unknown]
  - Ecchymosis [Unknown]
